FAERS Safety Report 8715931 (Version 2)
Quarter: 2013Q4

REPORT INFORMATION
  Report Type: Report from Study
  Country: US (occurrence: US)
  Receive Date: 20120809
  Receipt Date: 20131122
  Transmission Date: 20140711
  Serious: Yes (Hospitalization)
  Sender: FDA-Public Use
  Company Number: US-ACTELION-A-NJ2012-69479

PATIENT
  Age: 83 Year
  Sex: Female

DRUGS (4)
  1. TRACLEER [Suspect]
     Indication: PULMONARY ARTERIAL HYPERTENSION
     Dosage: 125 MG, BID
     Route: 048
     Dates: start: 20081128
  2. SILDENAFIL [Concomitant]
     Dosage: 20 MG, TID
     Dates: start: 2009
  3. SYNTHROID [Concomitant]
     Dosage: 50 MCG, QD
     Dates: start: 2003
  4. NORVASC [Concomitant]
     Dosage: 2.5 MG, QD

REACTIONS (6)
  - Fall [Recovered/Resolved]
  - Clavicle fracture [Recovered/Resolved]
  - Dyspnoea exertional [Not Recovered/Not Resolved]
  - Oxygen saturation decreased [Not Recovered/Not Resolved]
  - Palpitations [Recovered/Resolved]
  - Hypertension [Recovering/Resolving]
